FAERS Safety Report 5710500-X (Version None)
Quarter: 2008Q2

REPORT INFORMATION
  Report Type: 
  Country: None (occurrence: None)
  Receive Date: 20080414
  Receipt Date: 20080402
  Transmission Date: 20081010
  Serious: Yes (Hospitalization)
  Sender: FDA-Public Use
  Company Number: FABR-12141

PATIENT
  Age: 48 Year
  Sex: Female
  Weight: 50 kg

DRUGS (6)
  1. FABRAZYME [Suspect]
     Indication: FABRY'S DISEASE
     Dosage: 1 MG/KG, Q2W; INTRAVENOUS
     Route: 042
     Dates: start: 20051227
  2. ENALAPRIL MALEATE [Concomitant]
  3. CARVEDILOL [Concomitant]
  4. PRAVASTATIN [Concomitant]
  5. FUROSEMIDE [Concomitant]
  6. VERAPAMIL HYDROCHLORIDE [Concomitant]

REACTIONS (7)
  - BRAIN NATRIURETIC PEPTIDE INCREASED [None]
  - CARDIAC FAILURE [None]
  - DISEASE PROGRESSION [None]
  - ELECTROCARDIOGRAM ST-T SEGMENT ABNORMAL [None]
  - HEART RATE DECREASED [None]
  - MITRAL VALVE INCOMPETENCE [None]
  - VENTRICULAR EXTRASYSTOLES [None]
